FAERS Safety Report 6391543-2 (Version None)
Quarter: 2009Q4

REPORT INFORMATION
  Report Type: 
  Country: None (occurrence: None)
  Receive Date: 20091007
  Receipt Date: 20090930
  Transmission Date: 20100525
  Serious: Yes (Death)
  Sender: FDA-Public Use
  Company Number: CA-PURDUE-USA-2009-0040396

PATIENT
  Sex: Female

DRUGS (17)
  1. TRAMADOL HCL [Suspect]
     Indication: OSTEOARTHRITIS
     Dosage: 300 MG, DAILY
     Route: 048
     Dates: start: 20090522
  2. NEO-CAL D [Concomitant]
     Dosage: 1 TABLET, BID
  3. GEN-METFORMIN [Concomitant]
     Indication: DIABETES MELLITUS
     Dosage: 500 MG, TID
  4. LOSEC                              /00661201/ [Concomitant]
     Dosage: 40 MG, UNK
  5. ATACAND [Concomitant]
     Indication: MYOCARDIAL INFARCTION
     Dosage: 24 MG, DAILY
  6. ATACAND [Concomitant]
     Indication: CARDIAC ARREST
  7. ATACAND [Concomitant]
     Indication: OSTEOARTHRITIS
  8. ATACAND [Concomitant]
     Indication: ARTHRITIS
  9. ATACAND [Concomitant]
     Indication: MYALGIA
  10. NORVASC [Concomitant]
     Indication: OSTEOARTHRITIS
     Dosage: D
  11. NORVASC [Concomitant]
     Indication: MYALGIA
  12. NORVASC [Concomitant]
     Indication: ARRHYTHMIA
  13. NORVASC [Concomitant]
     Indication: OEDEMA
  14. NORVASC [Concomitant]
     Indication: ABNORMAL DREAMS
  15. LIPITOR [Concomitant]
     Indication: BLOOD CHOLESTEROL
     Dosage: 10 MG, DAILY
  16. NOVOSEMIDE [Concomitant]
     Dosage: 20 MG, DAILY
  17. ARTHROTEC                          /00372302/ [Concomitant]
     Dosage: 1 TABLET, BID PRN

REACTIONS (1)
  - PNEUMONIA [None]
